FAERS Safety Report 20756691 (Version 1)
Quarter: 2022Q2

REPORT INFORMATION
  Report Type: Spontaneous
  Country: GB (occurrence: GB)
  Receive Date: 20220427
  Receipt Date: 20220427
  Transmission Date: 20220721
  Serious: Yes (Death, Other)
  Sender: FDA-Public Use
  Company Number: GB-BRISTOL-MYERS SQUIBB COMPANY-BMS-2021-125193

PATIENT
  Age: 62 Year
  Sex: Female
  Weight: 66.6 kg

DRUGS (2)
  1. CARBOPLATIN [Suspect]
     Active Substance: CARBOPLATIN
     Indication: Anal cancer metastatic
     Dosage: UNKNOWN
     Route: 065
     Dates: start: 202103, end: 202109
  2. TAXOL [Suspect]
     Active Substance: PACLITAXEL
     Indication: Anal cancer metastatic
     Dosage: UNKNOWN
     Route: 065
     Dates: start: 202103, end: 202109

REACTIONS (4)
  - Metastases to liver [Fatal]
  - Intentional product use issue [Unknown]
  - Death [Fatal]
  - Disease progression [Fatal]
